FAERS Safety Report 6811321-7 (Version None)
Quarter: 2010Q2

REPORT INFORMATION
  Report Type: 
  Country: None (occurrence: None)
  Receive Date: 20100629
  Receipt Date: 20100629
  Transmission Date: 20101027
  Serious: No
  Sender: FDA-Public Use
  Company Number: None

PATIENT
  Age: 80 Year
  Sex: Female
  Weight: 64.4108 kg

DRUGS (1)
  1. METOPROLOL TARTRATE [Suspect]
     Indication: HYPERTENSION
     Dosage: TWICE A DAY
     Dates: start: 20090205

REACTIONS (4)
  - DIZZINESS [None]
  - HYPOAESTHESIA [None]
  - HYPOAESTHESIA ORAL [None]
  - SYNCOPE [None]
